FAERS Safety Report 9688787 (Version 1)
Quarter: 2013Q4

REPORT INFORMATION
  Report Type: Spontaneous
  Country: US (occurrence: US)
  Receive Date: 20131114
  Receipt Date: 20131114
  Transmission Date: 20140711
  Serious: Yes (Other)
  Sender: FDA-Public Use
  Company Number: US-TEVA-444428USA

PATIENT
  Age: 48 Year
  Sex: Male

DRUGS (2)
  1. RIBAVIRIN [Suspect]
     Indication: HEPATITIS C
     Route: 065
  2. INTERFERON [Suspect]
     Indication: HEPATITIS C
     Route: 065

REACTIONS (2)
  - Porphyria non-acute [Recovering/Resolving]
  - Anaemia [Recovered/Resolved]
